FAERS Safety Report 12639643 (Version 2)
Quarter: 2019Q3

REPORT INFORMATION
  Report Type: Spontaneous
  Country: US (occurrence: US)
  Receive Date: 20160810
  Receipt Date: 20190812
  Transmission Date: 20191004
  Serious: No
  Sender: FDA-Public Use
  Company Number: US-ASTRAZENECA-2016SE71403

PATIENT
  Sex: Male

DRUGS (12)
  1. ONGLYZA [Suspect]
     Active Substance: SAXAGLIPTIN HYDROCHLORIDE
     Indication: DIABETES MELLITUS
     Route: 048
  2. LYRICA [Suspect]
     Active Substance: PREGABALIN
     Dosage: 200.0MG UNKNOWN
     Route: 048
     Dates: start: 20190724
  3. ZINC. [Concomitant]
     Active Substance: ZINC
     Dosage: 50.0MG UNKNOWN
  4. SYMBICORT [Suspect]
     Active Substance: BUDESONIDE\FORMOTEROL FUMARATE DIHYDRATE
     Indication: CHRONIC OBSTRUCTIVE PULMONARY DISEASE
     Dosage: 160-4.5 MCG, UNKNOWN UNKNOWN
     Route: 055
  5. NIACIN. [Concomitant]
     Active Substance: NIACIN
     Dosage: 500.0MG UNKNOWN
  6. SPIRONOLACTONE. [Suspect]
     Active Substance: SPIRONOLACTONE
     Route: 065
  7. FLAGYL [Suspect]
     Active Substance: METRONIDAZOLE\METRONIDAZOLE HYDROCHLORIDE
     Dosage: 500.0MG UNKNOWN
     Route: 065
  8. AMLODIPINE [Concomitant]
     Active Substance: AMLODIPINE BESYLATE
     Dosage: 10.0MG UNKNOWN
  9. ALBUTEROL SULFATE. [Concomitant]
     Active Substance: ALBUTEROL SULFATE
  10. LYRICA [Suspect]
     Active Substance: PREGABALIN
     Dosage: 50.0MG UNKNOWN
     Route: 048
  11. TRILEPTAL [Concomitant]
     Active Substance: OXCARBAZEPINE
     Dosage: 750.0MG UNKNOWN
  12. MULTIVITAMINS [Concomitant]
     Active Substance: VITAMINS

REACTIONS (2)
  - Drug hypersensitivity [Unknown]
  - Rectal haemorrhage [Recovered/Resolved]
